FAERS Safety Report 18792250 (Version 1)
Quarter: 2021Q1

REPORT INFORMATION
  Report Type: Spontaneous
  Country: GB (occurrence: GB)
  Receive Date: 20210126
  Receipt Date: 20210126
  Transmission Date: 20210419
  Serious: Yes (Hospitalization)
  Sender: FDA-Public Use
  Company Number: GB-MDD US OPERATIONS-E2B_00003640

PATIENT
  Age: 82 Year
  Sex: Male

DRUGS (2)
  1. STALEVO [Suspect]
     Active Substance: CARBIDOPA\ENTACAPONE\LEVODOPA
     Indication: PARKINSON^S DISEASE
     Dosage: 175/47.5/200 MG
     Route: 048
  2. SAFINAMIDE [Suspect]
     Active Substance: SAFINAMIDE
     Indication: PARKINSON^S DISEASE
     Route: 048
     Dates: start: 20201222, end: 20210106

REACTIONS (3)
  - Delirium [Not Recovered/Not Resolved]
  - Hyponatraemia [Unknown]
  - Hallucination [Unknown]

NARRATIVE: CASE EVENT DATE: 20210105
